FAERS Safety Report 6816195-6 (Version None)
Quarter: 2010Q3

REPORT INFORMATION
  Report Type: 
  Country: None (occurrence: None)
  Receive Date: 20100705
  Receipt Date: 20100624
  Transmission Date: 20110219
  Serious: Yes (Hospitalization)
  Sender: FDA-Public Use
  Company Number: DE-ELI_LILLY_AND_COMPANY-DE201006006707

PATIENT
  Sex: Male
  Weight: 41.5 kg

DRUGS (3)
  1. GEMCITABINE HYDROCHLORIDE [Suspect]
     Indication: NON-SMALL CELL LUNG CANCER
     Dosage: 1200 MG/M2 (ABS DOSE 1353), UNK
     Dates: start: 20100224
  2. CETUXIMAB [Suspect]
     Indication: NON-SMALL CELL LUNG CANCER
     Dosage: 250 MG/M2 (ABS DOSE 375), UNK
     Dates: start: 20100224, end: 20100610
  3. CARBOPLATIN [Suspect]
     Indication: NON-SMALL CELL LUNG CANCER
     Dosage: 5 AUC, 75% (ABS DOSE 420): 420
     Dates: start: 20100224

REACTIONS (2)
  - ASTHENIA [None]
  - WEIGHT DECREASED [None]
